FAERS Safety Report 7159084-2 (Version None)
Quarter: 2010Q4

REPORT INFORMATION
  Report Type: 
  Country: None (occurrence: None)
  Receive Date: 20101214
  Receipt Date: 20101207
  Transmission Date: 20110411
  Serious: Yes (Other)
  Sender: FDA-Public Use
  Company Number: CHPA2010US18669

PATIENT
  Age: 83 Year
  Sex: Female

DRUGS (8)
  1. THERAFLU CAPLETS NIGHTTIME SEVERE COLD+COUGH (NCH) [Suspect]
     Indication: NASOPHARYNGITIS
     Dosage: 1 DF, TID
     Route: 048
     Dates: start: 20101204, end: 20101207
  2. THERAFLU CAPLETS NIGHTTIME SEVERE COLD+COUGH (NCH) [Suspect]
     Indication: INFLUENZA
  3. ARICEPT [Concomitant]
     Indication: DEMENTIA ALZHEIMER'S TYPE
     Dosage: UNK, UNK
  4. ARICEPT [Concomitant]
     Indication: DEMENTIA
  5. BENADRYL ^WARNER-LAMBERT^               /USA/ [Concomitant]
     Indication: NASOPHARYNGITIS
     Dosage: 12.5 MG, UNK
  6. BENADRYL ^WARNER-LAMBERT^               /USA/ [Concomitant]
     Indication: INFLUENZA
  7. TYLENOL (CAPLET) [Concomitant]
     Indication: NASOPHARYNGITIS
     Dosage: UNK, UNK
  8. TYLENOL (CAPLET) [Concomitant]
     Indication: INFLUENZA

REACTIONS (7)
  - CONDITION AGGRAVATED [None]
  - CONVULSION [None]
  - DELIRIUM [None]
  - NASOPHARYNGITIS [None]
  - OFF LABEL USE [None]
  - TREMOR [None]
  - VOMITING [None]
